FAERS Safety Report 9891628 (Version 1)
Quarter: 2014Q1

REPORT INFORMATION
  Report Type: Spontaneous
  Country: US (occurrence: None)
  Receive Date: 20140211
  Receipt Date: 20140211
  Transmission Date: 20141002
  Serious: Yes (Other)
  Sender: FDA-Public Use
  Company Number: None

PATIENT
  Age: 56 Year
  Sex: Male

DRUGS (2)
  1. REVLIMID [Suspect]
     Indication: PLASMA CELL MYELOMA
     Dates: start: 201110, end: 201312
  2. DEXAMETHASONE [Suspect]
     Indication: PLASMA CELL MYELOMA

REACTIONS (3)
  - Platelet count decreased [None]
  - Malaise [None]
  - Renal disorder [None]
